FAERS Safety Report 22113492 (Version 1)
Quarter: 2023Q1

REPORT INFORMATION
  Report Type: Spontaneous
  Country: US (occurrence: US)
  Receive Date: 20230320
  Receipt Date: 20230320
  Transmission Date: 20230418
  Serious: No
  Sender: FDA-Public Use
  Company Number: US-002147023-NVSC2023US063294

PATIENT
  Sex: Male

DRUGS (2)
  1. TAFINLAR [Suspect]
     Active Substance: DABRAFENIB MESYLATE
     Indication: Head and neck cancer
     Dosage: 100 MG, Q12H
     Route: 048
     Dates: start: 202301
  2. MEKINIST [Suspect]
     Active Substance: TRAMETINIB DIMETHYL SULFOXIDE
     Indication: Head and neck cancer
     Dosage: 1.5 MG, QD
     Route: 048
     Dates: start: 202301

REACTIONS (5)
  - Infrequent bowel movements [Unknown]
  - Muscle strain [Unknown]
  - Abdominal discomfort [Unknown]
  - Gastrointestinal pain [Unknown]
  - Constipation [Unknown]
